FAERS Safety Report 26206538 (Version 1)
Quarter: 2025Q4

REPORT INFORMATION
  Report Type: Spontaneous
  Country: CN (occurrence: CN)
  Receive Date: 20251229
  Receipt Date: 20251229
  Transmission Date: 20260118
  Serious: Yes (Other)
  Sender: GE HEALTHCARE
  Company Number: CN-GE HEALTHCARE-2025CSU018363

PATIENT
  Age: 45 Year
  Sex: Female

DRUGS (2)
  1. OMNIPAQUE [Suspect]
     Active Substance: IOHEXOL
     Indication: Angiogram
     Dosage: UNK UNK, TOTAL
     Route: 042
     Dates: start: 20210627
  2. OMNIPAQUE [Suspect]
     Active Substance: IOHEXOL
     Indication: Thrombectomy

REACTIONS (4)
  - Skin necrosis [Recovered/Resolved]
  - Blood blister [Recovered/Resolved]
  - Infusion site extravasation [Recovered/Resolved]
  - Peripheral swelling [Recovered/Resolved]

NARRATIVE: CASE EVENT DATE: 20210627
